FAERS Safety Report 5027006-6 (Version None)
Quarter: 2006Q2

REPORT INFORMATION
  Report Type: 
  Country: None (occurrence: None)
  Receive Date: 20060609
  Receipt Date: 20060530
  Transmission Date: 20061013
  Serious: Yes (Hospitalization, Other)
  Sender: FDA-Public Use
  Company Number: 2006065621

PATIENT
  Age: 61 Year
  Sex: Male

DRUGS (1)
  1. TAHOR (ATORVASTATIN) [Suspect]
     Indication: ILL-DEFINED DISORDER
     Dosage: 10 MG

REACTIONS (4)
  - ARRHYTHMIA [None]
  - DIALYSIS [None]
  - RENAL FAILURE [None]
  - RHABDOMYOLYSIS [None]
